FAERS Safety Report 12067228 (Version 13)
Quarter: 2018Q2

REPORT INFORMATION
  Report Type: Report from Study
  Country: US (occurrence: US)
  Receive Date: 20160211
  Receipt Date: 20180625
  Transmission Date: 20180711
  Serious: Yes (Hospitalization, Other)
  Sender: FDA-Public Use
  Company Number: US-B.I. PHARMACEUTICALS,INC./RIDGEFIELD-2016-BI-02396BP

PATIENT
  Sex: Female

DRUGS (4)
  1. VERAPAMIL [Concomitant]
     Active Substance: VERAPAMIL HYDROCHLORIDE
     Indication: PRODUCT USED FOR UNKNOWN INDICATION
     Route: 065
  2. NINTEDANIB [Suspect]
     Active Substance: NINTEDANIB
     Indication: IDIOPATHIC PULMONARY FIBROSIS
     Route: 048
     Dates: start: 20160108
  3. NINTEDANIB [Suspect]
     Active Substance: NINTEDANIB
     Route: 048
     Dates: start: 20160113
  4. NINTEDANIB [Suspect]
     Active Substance: NINTEDANIB
     Route: 048

REACTIONS (22)
  - Haematochezia [Unknown]
  - Stress [Unknown]
  - Cough [Unknown]
  - Diarrhoea [Unknown]
  - Diarrhoea haemorrhagic [Unknown]
  - Productive cough [Unknown]
  - Dyspnoea exertional [Unknown]
  - Dyspnoea [Unknown]
  - Depression [Unknown]
  - Cystitis [Unknown]
  - Nasopharyngitis [Unknown]
  - Alopecia [Unknown]
  - Osteoarthritis [Unknown]
  - Haemorrhoids [Unknown]
  - Fear [Unknown]
  - Constipation [Unknown]
  - Malaise [Unknown]
  - Therapeutic response unexpected [Unknown]
  - Urinary tract infection [Unknown]
  - Hypersensitivity [Unknown]
  - Fatigue [Unknown]
  - Accident [Unknown]
